FAERS Safety Report 6411058-2 (Version None)
Quarter: 2009Q4

REPORT INFORMATION
  Report Type: 
  Country: None (occurrence: None)
  Receive Date: 20091021
  Receipt Date: 20091021
  Transmission Date: 20100525
  Serious: Yes (Life-Threatening, Hospitalization, Other)
  Sender: FDA-Public Use
  Company Number: None

PATIENT
  Sex: Male
  Weight: 90.7194 kg

DRUGS (1)
  1. NALTREXONE 50 MG [Suspect]
     Indication: DRUG DETOXIFICATION
     Dosage: 50 MG 1/DAY PO TAKEN ONCE W/ADVERSE REAX
     Route: 048
     Dates: start: 20091012, end: 20091012

REACTIONS (8)
  - ABNORMAL BEHAVIOUR [None]
  - CARDIAC DISORDER [None]
  - DRUG PRESCRIBING ERROR [None]
  - HEART RATE INCREASED [None]
  - MOANING [None]
  - MYOCARDIAL INFARCTION [None]
  - PAIN [None]
  - WITHDRAWAL SYNDROME [None]
